FAERS Safety Report 5880059-5 (Version None)
Quarter: 2008Q3

REPORT INFORMATION
  Report Type: 
  Country: None (occurrence: None)
  Receive Date: 20080912
  Receipt Date: 20080902
  Transmission Date: 20090109
  Serious: Yes (Other)
  Sender: FDA-Public Use
  Company Number: US-PFIZER INC-2008067831

PATIENT
  Sex: Male
  Weight: 77.1 kg

DRUGS (8)
  1. LYRICA [Suspect]
     Indication: PAIN
     Dates: start: 20080809
  2. LYRICA [Suspect]
     Indication: NEUROPATHY PERIPHERAL
  3. METHYLPREDNISOLONE 16MG TAB [Concomitant]
  4. VITAMIN B-12 [Concomitant]
  5. PRILOSEC [Concomitant]
  6. HYZAAR [Concomitant]
  7. FINASTERIDE [Concomitant]
  8. FOLIC ACID [Concomitant]

REACTIONS (4)
  - ANURIA [None]
  - MICTURITION DISORDER [None]
  - MICTURITION FREQUENCY DECREASED [None]
  - URINE FLOW DECREASED [None]
